FAERS Safety Report 8457090-9 (Version None)
Quarter: 2012Q2

REPORT INFORMATION
  Report Type: 
  Country: None (occurrence: None)
  Receive Date: 20120621
  Receipt Date: 20120608
  Transmission Date: 20120825
  Serious: Yes (Death, Hospitalization)
  Sender: FDA-Public Use
  Company Number: FR-MYLANLABS-2012S1011962

PATIENT
  Age: 58 Year
  Sex: Male

DRUGS (4)
  1. AZATHIOPRINE [Suspect]
     Indication: CROHN'S DISEASE
     Route: 065
  2. CIPROFLOXACIN HYDROCHLORIDE [Concomitant]
     Indication: PNEUMONIA
     Route: 065
  3. INFLIXIMAB [Suspect]
     Indication: CROHN'S DISEASE
     Route: 065
  4. PIPERACILLIN AND TAZOBACTAM [Concomitant]
     Indication: PNEUMONIA
     Route: 065

REACTIONS (7)
  - BRONCHOPULMONARY ASPERGILLOSIS [None]
  - SEPSIS [None]
  - PNEUMOCYSTIS JIROVECI PNEUMONIA [None]
  - SEPTIC SHOCK [None]
  - NON-HODGKIN'S LYMPHOMA [None]
  - MULTI-ORGAN FAILURE [None]
  - SYSTEMIC CANDIDA [None]
